FAERS Safety Report 7670128-1 (Version None)
Quarter: 2011Q3

REPORT INFORMATION
  Report Type: 
  Country: None (occurrence: None)
  Receive Date: 20110808
  Receipt Date: 20110728
  Transmission Date: 20111222
  Serious: Yes (Other)
  Sender: FDA-Public Use
  Company Number: JP-ASTRAZENECA-2011SE46441

PATIENT
  Age: 81 Year
  Sex: Female

DRUGS (4)
  1. MEROPENEM [Suspect]
     Route: 042
  2. CEFCAPENE PIVOXIL HYDROCHLORIDE HYDRAETE [Suspect]
     Route: 048
  3. CEFAZOLIN SODIUM [Suspect]
  4. AMPICILLIN HYDRATE [Suspect]

REACTIONS (2)
  - SEPTIC SHOCK [None]
  - COLITIS [None]
